FAERS Safety Report 15785357 (Version 2)
Quarter: 2019Q1

REPORT INFORMATION
  Report Type: Spontaneous
  Country: US (occurrence: US)
  Receive Date: 20190103
  Receipt Date: 20190119
  Transmission Date: 20190417
  Serious: Yes (Hospitalization)
  Sender: FDA-Public Use
  Company Number: US-TEVA-2018-US-993455

PATIENT
  Age: 17 Year
  Sex: Female

DRUGS (4)
  1. CYTARABINE. [Suspect]
     Active Substance: CYTARABINE
     Indication: METASTATIC NEOPLASM
  2. CLADRIBINE. [Suspect]
     Active Substance: CLADRIBINE
     Indication: METASTATIC NEOPLASM
  3. CYTARABINE. [Suspect]
     Active Substance: CYTARABINE
     Indication: HISTIOCYTIC SARCOMA
     Dosage: FOUR CYCLES
     Route: 065
  4. CLADRIBINE. [Suspect]
     Active Substance: CLADRIBINE
     Indication: HISTIOCYTIC SARCOMA
     Dosage: FOUR CYCLES
     Route: 065

REACTIONS (4)
  - Lymphopenia [Not Recovered/Not Resolved]
  - Febrile neutropenia [Unknown]
  - Bronchopulmonary aspergillosis [Unknown]
  - Thrombocytopenia [Not Recovered/Not Resolved]
